FAERS Safety Report 18284550 (Version 2)
Quarter: 2020Q3

REPORT INFORMATION
  Report Type: Report from Study
  Country: IT (occurrence: IT)
  Receive Date: 20200918
  Receipt Date: 20200927
  Transmission Date: 20201103
  Serious: Yes (Other)
  Sender: FDA-Public Use
  Company Number: IT-ASTRAZENECA-2020SF18088

PATIENT
  Sex: Female
  Weight: 57 kg

DRUGS (2)
  1. LYNPARZA [Suspect]
     Active Substance: OLAPARIB
     Indication: OVARIAN CANCER
     Route: 048
     Dates: start: 20200703
  2. LYNPARZA [Suspect]
     Active Substance: OLAPARIB
     Indication: OVARIAN CANCER
     Route: 048

REACTIONS (6)
  - Neutropenia [Unknown]
  - Asthenia [Recovered/Resolved]
  - Thrombocytopenia [Unknown]
  - Dysgeusia [Unknown]
  - Pancytopenia [Recovering/Resolving]
  - Anaemia [Recovering/Resolving]
